FAERS Safety Report 4579917-3 (Version None)
Quarter: 2005Q1

REPORT INFORMATION
  Report Type: 
  Country: None (occurrence: None)
  Receive Date: 20050210
  Receipt Date: 20050126
  Transmission Date: 20050727
  Serious: Yes (Death)
  Sender: FDA-Public Use
  Company Number: 2004AL000681

PATIENT
  Age: 68 Year
  Sex: Female

DRUGS (5)
  1. LORAZEPAM [Suspect]
     Dosage: PO
     Route: 048
  2. ACETAMINOPHEN [Suspect]
     Dosage: PO
     Route: 048
  3. ACETAMINOPHEN [Suspect]
  4. DESIPRAMIDE HCL [Suspect]
  5. ESCITALOPRAM [Suspect]

REACTIONS (11)
  - ALANINE AMINOTRANSFERASE INCREASED [None]
  - ASPARTATE AMINOTRANSFERASE INCREASED [None]
  - BLOOD PH DECREASED [None]
  - BRADYCARDIA [None]
  - CARDIAC ARREST [None]
  - COMA [None]
  - COMPLETED SUICIDE [None]
  - HYPOTENSION [None]
  - MULTIPLE DRUG OVERDOSE [None]
  - RESPIRATORY ARREST [None]
  - RESPIRATORY DEPRESSION [None]
